FAERS Safety Report 11211088 (Version 1)
Quarter: 2015Q2

REPORT INFORMATION
  Report Type: Spontaneous
  Country: US (occurrence: US)
  Receive Date: 20150623
  Receipt Date: 20150623
  Transmission Date: 20150821
  Serious: No
  Sender: FDA-Public Use
  Company Number: US-009507513-1506USA008399

PATIENT
  Age: 63 Year
  Sex: Female

DRUGS (2)
  1. REBETOL [Suspect]
     Active Substance: RIBAVIRIN
     Dosage: UNK, QD
     Route: 048
     Dates: start: 2010, end: 2010
  2. REBETOL [Suspect]
     Active Substance: RIBAVIRIN
     Indication: HEPATITIS C
     Dosage: UNK, QD
     Route: 048
     Dates: start: 2009, end: 2010

REACTIONS (13)
  - Asthenia [Unknown]
  - Sleep disorder [Unknown]
  - Haemoglobin decreased [Unknown]
  - Haemoglobin decreased [Unknown]
  - Nausea [Unknown]
  - Impaired work ability [Unknown]
  - Asthenia [Unknown]
  - Disturbance in attention [Unknown]
  - Nausea [Unknown]
  - Disturbance in attention [Unknown]
  - Sleep disorder [Unknown]
  - Impaired work ability [Unknown]
  - Viral load increased [Unknown]

NARRATIVE: CASE EVENT DATE: 2009
